FAERS Safety Report 4992678-9 (Version None)
Quarter: 2006Q2

REPORT INFORMATION
  Report Type: 
  Country: None (occurrence: None)
  Receive Date: 20060504
  Receipt Date: 20041013
  Transmission Date: 20061013
  Serious: Yes (Hospitalization)
  Sender: FDA-Public Use
  Company Number: US-BOEHRINGER INGELHEIM PHARMACEUTICALS, INC.-2004-BP-09793BP

PATIENT
  Sex: Female
  Weight: 94.8 kg

DRUGS (5)
  1. TIPRANAVIR / RITONAVIR CAPSULES [Suspect]
     Indication: HIV INFECTION
     Dosage: 500/400 MG
     Route: 048
     Dates: start: 20031222, end: 20041007
  2. METHADONE [Suspect]
     Indication: DRUG WITHDRAWAL MAINTENANCE THERAPY
     Route: 048
     Dates: start: 20040730
  3. LANTUS [Concomitant]
     Indication: DIABETES MELLITUS
     Route: 058
     Dates: start: 20040205
  4. KLONAPIN [Concomitant]
     Indication: ANXIETY
     Route: 048
     Dates: start: 20041008
  5. TIGAN SUPP [Concomitant]
     Indication: NAUSEA
     Route: 054
     Dates: start: 20041008

REACTIONS (4)
  - DEHYDRATION [None]
  - DRUG WITHDRAWAL SYNDROME [None]
  - NAUSEA [None]
  - VOMITING [None]
